FAERS Safety Report 6916630-9 (Version None)
Quarter: 2010Q3

REPORT INFORMATION
  Report Type: 
  Country: None (occurrence: None)
  Receive Date: 20100810
  Receipt Date: 20100730
  Transmission Date: 20110219
  Serious: Yes (Other)
  Sender: FDA-Public Use
  Company Number: US-BAYER-201029836NA

PATIENT
  Age: 54 Year
  Sex: Female

DRUGS (1)
  1. YAZ [Suspect]
     Indication: MENOPAUSE
     Dosage: TAKE 3 PILLS A DAY UNTIL THE BLEEDING BECOMES NORMAL , THEN 2 PILLS A DAY AND THEN ONE PILL A DAY

REACTIONS (2)
  - JOINT SWELLING [None]
  - LUPUS-LIKE SYNDROME [None]
